FAERS Safety Report 12824156 (Version 1)
Quarter: 2016Q4

REPORT INFORMATION
  Report Type: Spontaneous
  Country: DE (occurrence: DE)
  Receive Date: 20161007
  Receipt Date: 20161007
  Transmission Date: 20170207
  Serious: Yes (Other)
  Sender: FDA-Public Use
  Company Number: DE-AUROBINDO-AUR-APL-2016-12225

PATIENT

DRUGS (3)
  1. VENLAFAXINE 75MG [Suspect]
     Active Substance: VENLAFAXINE HYDROCHLORIDE
     Indication: DEPRESSION
     Dosage: 75 MG, DAILY
     Route: 064
     Dates: start: 20150913, end: 20160606
  2. FEMIBION                           /01597501/ [Concomitant]
     Active Substance: CALCIUM PHOSPHATE, DIBASIC, ANHYDROUS\FERROUS SUCCINATE\MAGNESIUM HYDROXIDE
     Indication: VITAMIN SUPPLEMENTATION
     Dosage: UNK
     Route: 064
     Dates: start: 20151201, end: 20160606
  3. VOMEX A [Suspect]
     Active Substance: DIMENHYDRINATE
     Indication: VOMITING IN PREGNANCY
     Dosage: 150 MG, UNK
     Route: 064

REACTIONS (2)
  - Foetal exposure during pregnancy [Recovered/Resolved with Sequelae]
  - Pyloric stenosis [Recovered/Resolved with Sequelae]
